FAERS Safety Report 21815634 (Version 1)
Quarter: 2023Q1

REPORT INFORMATION
  Report Type: Spontaneous
  Country: FR (occurrence: FR)
  Receive Date: 20230104
  Receipt Date: 20230104
  Transmission Date: 20230417
  Serious: Yes (Life-Threatening, Hospitalization)
  Sender: FDA-Public Use
  Company Number: None

PATIENT
  Age: 29 Year
  Sex: Female
  Weight: 48.2 kg

DRUGS (4)
  1. CEFEPIME HYDROCHLORIDE [Suspect]
     Active Substance: CEFEPIME HYDROCHLORIDE
     Indication: Skin bacterial infection
     Dosage: 4 GRAM
     Route: 042
     Dates: start: 20220818, end: 20220914
  2. PREGABALIN [Suspect]
     Active Substance: PREGABALIN
     Indication: Neuralgia
     Dosage: 150 MILLIGRAM
     Route: 048
     Dates: start: 20220814, end: 20220914
  3. RIFAMPIN [Suspect]
     Active Substance: RIFAMPIN
     Indication: Skin bacterial infection
     Dosage: 900 MILLIGRAM
     Route: 048
     Dates: start: 20220818, end: 20220914
  4. LEVOFLOXACIN [Suspect]
     Active Substance: LEVOFLOXACIN
     Indication: Skin bacterial infection
     Dosage: 750 MILLIGRAM
     Route: 048
     Dates: start: 20220818, end: 20220914

REACTIONS (2)
  - Agranulocytosis [Recovered/Resolved]
  - Rash papular [Recovered/Resolved]

NARRATIVE: CASE EVENT DATE: 20220909
